FAERS Safety Report 23227549 (Version 2)
Quarter: 2023Q4

REPORT INFORMATION
  Report Type: Report from Study
  Country: US (occurrence: US)
  Receive Date: 20231124
  Receipt Date: 20231212
  Transmission Date: 20240110
  Serious: Yes (Hospitalization, Other)
  Sender: FDA-Public Use
  Company Number: US-ALXN-A202302776AA

PATIENT
  Age: 67 Year
  Sex: Male

DRUGS (1)
  1. ULTOMIRIS [Suspect]
     Active Substance: RAVULIZUMAB-CWVZ
     Indication: Myasthenia gravis
     Dosage: UNK
     Route: 065

REACTIONS (14)
  - Myocardial necrosis marker increased [Unknown]
  - Chest pain [Recovered/Resolved]
  - Pulmonary calcification [Unknown]
  - Gastrooesophageal reflux disease [Unknown]
  - Oesophageal spasm [Recovered/Resolved]
  - Pain [Recovered/Resolved]
  - Pulmonary thrombosis [Unknown]
  - Cerebrovascular accident [Unknown]
  - Cardiac disorder [Unknown]
  - Speech disorder [Unknown]
  - Drug ineffective [Unknown]
  - Dizziness [Unknown]
  - Asthenia [Not Recovered/Not Resolved]
  - Fatigue [Unknown]

NARRATIVE: CASE EVENT DATE: 20230618
